FAERS Safety Report 17837258 (Version 1)
Quarter: 2020Q2

REPORT INFORMATION
  Report Type: Spontaneous
  Country: PA (occurrence: PA)
  Receive Date: 20200529
  Receipt Date: 20200529
  Transmission Date: 20200714
  Serious: Yes (Other)
  Sender: FDA-Public Use
  Company Number: PA-BRISTOL-MYERS SQUIBB COMPANY-BMS-2020-041972

PATIENT
  Age: 101 Year
  Sex: Female

DRUGS (1)
  1. ELIQUIS [Suspect]
     Active Substance: APIXABAN
     Indication: PRODUCT USED FOR UNKNOWN INDICATION
     Dosage: 5 MILLIGRAM, BID
     Route: 065

REACTIONS (3)
  - Gastric cancer [Unknown]
  - Embolism venous [Unknown]
  - Haemorrhage [Unknown]
